FAERS Safety Report 4761370-8 (Version None)
Quarter: 2005Q3

REPORT INFORMATION
  Report Type: 
  Country: None (occurrence: None)
  Receive Date: 20050906
  Receipt Date: 20050111
  Transmission Date: 20060218
  Serious: Yes (Hospitalization)
  Sender: FDA-Public Use
  Company Number: BE-BRISTOL-MYERS SQUIBB COMPANY-12820478

PATIENT
  Sex: Female

DRUGS (2)
  1. CORGARD [Suspect]
     Route: 048
     Dates: start: 19990101, end: 20050301
  2. BISOPROLOL [Concomitant]

REACTIONS (3)
  - NORMAL NEWBORN [None]
  - PREGNANCY [None]
  - UTERINE CONTRACTIONS ABNORMAL [None]
